FAERS Safety Report 22635020 (Version 1)
Quarter: 2023Q2

REPORT INFORMATION
  Report Type: Spontaneous
  Country: US (occurrence: None)
  Receive Date: 20230620
  Receipt Date: 20230620
  Transmission Date: 20230721
  Serious: No
  Sender: FDA-Public Use
  Company Number: None

PATIENT
  Age: 67 Year
  Weight: 154 kg

DRUGS (9)
  1. LENALIDOMIDE [Suspect]
     Active Substance: LENALIDOMIDE
     Indication: Plasma cell myeloma
     Dosage: FREQUENCY : DAILY;?
     Route: 048
     Dates: start: 202305
  2. VELCADE [Concomitant]
     Active Substance: BORTEZOMIB
  3. DEXAMETHASONE [Concomitant]
  4. METFORMIN [Concomitant]
  5. LISINOPRIL [Concomitant]
     Active Substance: LISINOPRIL
  6. ALLOPURINOL [Concomitant]
  7. ONDANSETRON [Concomitant]
     Active Substance: ONDANSETRON
  8. TYLENOL [Concomitant]
  9. NORCO [Concomitant]
     Active Substance: ACETAMINOPHEN\HYDROCODONE BITARTRATE

REACTIONS (1)
  - Death [None]

NARRATIVE: CASE EVENT DATE: 20230606
